FAERS Safety Report 5356715-4 (Version None)
Quarter: 2007Q2

REPORT INFORMATION
  Report Type: 
  Country: None (occurrence: None)
  Receive Date: 20070530
  Receipt Date: 20061005
  Transmission Date: 20071010
  Serious: Yes (Hospitalization)
  Sender: FDA-Public Use
  Company Number: US200608005461

PATIENT
  Sex: Male
  Weight: 127 kg

DRUGS (5)
  1. ZYPREXA [Suspect]
     Indication: ANXIETY
     Dates: start: 20010101, end: 20020101
  2. QUETIAPINE FUMARATE [Concomitant]
  3. DIVALPROEX SODIUM [Concomitant]
  4. LITHIUM CARBONATE [Concomitant]
  5. PAROXETINE [Concomitant]

REACTIONS (4)
  - DIABETIC KETOACIDOSIS [None]
  - HYPERGLYCAEMIC HYPEROSMOLAR NONKETOTIC SYNDROME [None]
  - METABOLIC DISORDER [None]
  - METABOLIC SYNDROME [None]
